FAERS Safety Report 21422474 (Version 1)
Quarter: 2022Q4

REPORT INFORMATION
  Report Type: Spontaneous
  Country: US (occurrence: US)
  Receive Date: 20221007
  Receipt Date: 20221007
  Transmission Date: 20230113
  Serious: Yes (Other)
  Sender: FDA-Public Use
  Company Number: US-MYLANLABS-2022M1111119

PATIENT
  Age: 31 Year
  Sex: Male

DRUGS (12)
  1. ETOPOSIDE [Suspect]
     Active Substance: ETOPOSIDE
     Indication: Cutaneous T-cell lymphoma
     Dosage: UNK, CYCLE, TWO CYCLES OF DAILY DOSE-ADJUSTED EPOCH CHEMOTHERAPY
     Route: 065
  2. PREDNISONE [Suspect]
     Active Substance: PREDNISONE
     Indication: Cutaneous T-cell lymphoma
     Dosage: UNK, CYCLE, TWO CYCLES OF DAILY DOSE-ADJUSTED EPOCH CHEMOTHERAPY
     Route: 065
  3. DOXORUBICIN [Suspect]
     Active Substance: DOXORUBICIN
     Indication: Cutaneous T-cell lymphoma
     Dosage: UNK, CYCLE, TWO CYCLES OF DAILY DOSE-ADJUSTED EPOCH CHEMOTHERAPY
     Route: 065
  4. ETOPOSIDE [Suspect]
     Active Substance: ETOPOSIDE
     Indication: Cutaneous T-cell lymphoma
     Dosage: UNK UNK, CYCLE, ONE CYCLE OF IFOSFAMIDE, CARBOPLATIN, AND ETOPOSIDE CHEMOTHERAPY
     Route: 065
  5. ETOPOSIDE [Suspect]
     Active Substance: ETOPOSIDE
     Dosage: UNK
     Route: 065
  6. CARBOPLATIN [Suspect]
     Active Substance: CARBOPLATIN
     Indication: Cutaneous T-cell lymphoma
     Dosage: UNK, CYCLE,ONE CYCLE OF IFOSFAMIDE, CARBOPLATIN, AND ETOPOSIDE CHEMOTHERAPY
     Route: 065
  7. IFOSFAMIDE [Suspect]
     Active Substance: IFOSFAMIDE
     Indication: Cutaneous T-cell lymphoma
     Dosage: UNK, CYCLE,ONE CYCLE OF IFOSFAMIDE, CARBOPLATIN, AND ETOPOSIDE CHEMOTHERAPY
     Route: 065
  8. DEXAMETHASONE [Suspect]
     Active Substance: DEXAMETHASONE
     Indication: Cutaneous T-cell lymphoma
     Dosage: UNK
     Route: 065
  9. VINCRISTINE [Suspect]
     Active Substance: VINCRISTINE
     Indication: Cutaneous T-cell lymphoma
     Dosage: UNK UNK, CYCLE, TWO CYCLES OF DAILY DOSE-ADJUSTED EPOCH CHEMOTHERAPY
     Route: 065
  10. CYCLOPHOSPHAMIDE [Suspect]
     Active Substance: CYCLOPHOSPHAMIDE
     Indication: Cutaneous T-cell lymphoma
     Dosage: UNK, CYCLE, TWO CYCLES OF DAILY DOSE-ADJUSTED EPOCH CHEMOTHERAPY
     Route: 065
  11. ALEMTUZUMAB [Suspect]
     Active Substance: ALEMTUZUMAB
     Indication: Cutaneous T-cell lymphoma
     Dosage: UNK
     Route: 065
  12. BEXAROTENE [Concomitant]
     Active Substance: BEXAROTENE
     Indication: Product used for unknown indication
     Dosage: 75 MILLIGRAM, QD,75 MG DAILY BEXAROTENE WITH A PLAN TO INCREASE TO 600 MG DAILY.
     Route: 065

REACTIONS (2)
  - Drug ineffective [Unknown]
  - Disease progression [Unknown]
